FAERS Safety Report 5426011-5 (Version None)
Quarter: 2007Q3

REPORT INFORMATION
  Report Type: 
  Country: None (occurrence: None)
  Receive Date: 20070824
  Receipt Date: 20070824
  Transmission Date: 20080115
  Serious: Yes (Hospitalization)
  Sender: FDA-Public Use
  Company Number: None

PATIENT
  Sex: Female
  Weight: 52 kg

DRUGS (11)
  1. ALISKIREN [Suspect]
     Indication: HYPERTENSION
     Dosage: 150 MG DAILY PO
     Route: 048
     Dates: start: 20070710
  2. LIPITOR [Concomitant]
  3. ZYRTEC [Concomitant]
  4. RENAGEL [Concomitant]
  5. PROGRAF [Concomitant]
  6. PREDNISONE [Concomitant]
  7. CATAPRES [Concomitant]
  8. PROZAC [Concomitant]
  9. NEXIUM [Concomitant]
  10. DIOVAN [Concomitant]
  11. LOPRESSOR [Concomitant]

REACTIONS (3)
  - GRAND MAL CONVULSION [None]
  - MENTAL STATUS CHANGES [None]
  - PANCREATITIS [None]
